FAERS Safety Report 5445852-1 (Version None)
Quarter: 2007Q3

REPORT INFORMATION
  Report Type: 
  Country: None (occurrence: None)
  Receive Date: 20070904
  Receipt Date: 20070822
  Transmission Date: 20080115
  Serious: Yes (Hospitalization)
  Sender: FDA-Public Use
  Company Number: 2007JP003652

PATIENT
  Age: 69 Year
  Sex: Female

DRUGS (9)
  1. TACROLIMUS [Suspect]
     Indication: RHEUMATOID ARTHRITIS
     Dosage: 1 MG, UNK/D, ORAL; 1 MG, UNK/D, ORAL; 1.5 MG, UNK/D, ORAL
     Route: 048
     Dates: start: 20060926, end: 20061115
  2. TACROLIMUS [Suspect]
     Indication: RHEUMATOID ARTHRITIS
     Dosage: 1 MG, UNK/D, ORAL; 1 MG, UNK/D, ORAL; 1.5 MG, UNK/D, ORAL
     Route: 048
     Dates: start: 20061215, end: 20061226
  3. TACROLIMUS [Suspect]
     Indication: RHEUMATOID ARTHRITIS
     Dosage: 1 MG, UNK/D, ORAL; 1 MG, UNK/D, ORAL; 1.5 MG, UNK/D, ORAL
     Route: 048
     Dates: start: 20061227
  4. PREDNISOLONE [Concomitant]
  5. BASEN (VOGLIBOSE) [Concomitant]
  6. NATEGLINIDE [Concomitant]
  7. BONALON (ALENDROIC ACID) TABLET [Concomitant]
  8. LIPITOR [Concomitant]
  9. NORVASC [Concomitant]

REACTIONS (1)
  - PYELONEPHRITIS [None]
